FAERS Safety Report 5166164-X (Version None)
Quarter: 2006Q4

REPORT INFORMATION
  Report Type: 
  Country: None (occurrence: None)
  Receive Date: 20061129
  Receipt Date: 20061116
  Transmission Date: 20070319
  Serious: Yes (Hospitalization, Other)
  Sender: FDA-Public Use
  Company Number: 2006143705

PATIENT
  Age: 12 Year
  Sex: Male
  Weight: 51.2565 kg

DRUGS (4)
  1. ZYVOX [Suspect]
     Indication: STAPHYLOCOCCAL SEPSIS
     Dosage: 100MG/5ML ; 200MG/10ML ( 2 IN  1 D),ORAL
     Route: 048
     Dates: start: 20061110
  2. CLARITIN-D [Concomitant]
  3. PSEUDOEPHEDRINE HCL [Concomitant]
  4. RHINOCORT [Concomitant]

REACTIONS (6)
  - ABNORMAL BEHAVIOUR [None]
  - AGITATION [None]
  - HEADACHE [None]
  - MENTAL STATUS CHANGES [None]
  - PSYCHOTIC DISORDER [None]
  - UNEVALUABLE EVENT [None]
